FAERS Safety Report 23456901 (Version 1)
Quarter: 2024Q1

REPORT INFORMATION
  Report Type: Spontaneous
  Country: US (occurrence: US)
  Receive Date: 20240130
  Receipt Date: 20240130
  Transmission Date: 20240410
  Serious: No
  Sender: FDA-Public Use
  Company Number: US-BIOVITRUM-2024-US-001334

PATIENT
  Age: 77 Year
  Sex: Male

DRUGS (1)
  1. KINERET [Suspect]
     Active Substance: ANAKINRA
     Indication: Crystal arthropathy
     Dosage: DAILY
     Route: 058
     Dates: start: 20231226

REACTIONS (7)
  - Injection site pain [Unknown]
  - Product use issue [Unknown]
  - Diarrhoea [Unknown]
  - Blood glucose increased [Unknown]
  - Blood urea increased [Unknown]
  - Off label use [Not Recovered/Not Resolved]
  - Blood cholesterol abnormal [Unknown]

NARRATIVE: CASE EVENT DATE: 20231226
